FAERS Safety Report 4713877-7 (Version None)
Quarter: 2005Q3

REPORT INFORMATION
  Report Type: 
  Country: None (occurrence: None)
  Receive Date: 20050712
  Receipt Date: 20050627
  Transmission Date: 20060218
  Serious: Yes (Hospitalization)
  Sender: FDA-Public Use
  Company Number: 2005BI009161

PATIENT
  Age: 61 Year
  Sex: Male

DRUGS (2)
  1. AMEVIVE [Suspect]
     Indication: PSORIASIS
     Dosage: 15 MG;QW; IM
     Route: 030
     Dates: start: 20040908, end: 20041124
  2. CARDIZEM [Concomitant]

REACTIONS (3)
  - GANGRENE [None]
  - PSEUDOMONAS INFECTION [None]
  - PYODERMA [None]
